FAERS Safety Report 16716779 (Version 2)
Quarter: 2019Q4

REPORT INFORMATION
  Report Type: Report from Study
  Country: US (occurrence: US)
  Receive Date: 20190819
  Receipt Date: 20191105
  Transmission Date: 20200122
  Serious: No
  Sender: FDA-Public Use
  Company Number: US-JNJFOC-20190501003

PATIENT
  Age: 69 Year
  Sex: Male

DRUGS (1)
  1. IMBRUVICA [Suspect]
     Active Substance: IBRUTINIB
     Indication: CHRONIC LYMPHOCYTIC LEUKAEMIA
     Route: 048
     Dates: start: 20190328, end: 20190822

REACTIONS (12)
  - Diabetes mellitus [Recovering/Resolving]
  - Blood alkaline phosphatase [Unknown]
  - Burning sensation [Recovering/Resolving]
  - Lymphocytosis [Recovering/Resolving]
  - Carbon dioxide decreased [Unknown]
  - Protein total abnormal [Recovering/Resolving]
  - Fatigue [Not Recovered/Not Resolved]
  - Blood pressure increased [Not Recovered/Not Resolved]
  - Asthenia [Not Recovered/Not Resolved]
  - Headache [Recovered/Resolved]
  - Muscle spasms [Not Recovered/Not Resolved]
  - Red blood cell count decreased [Not Recovered/Not Resolved]

NARRATIVE: CASE EVENT DATE: 20190328
